FAERS Safety Report 8481105-5 (Version None)
Quarter: 2012Q3

REPORT INFORMATION
  Report Type: 
  Country: None (occurrence: None)
  Receive Date: 20120702
  Receipt Date: 20120618
  Transmission Date: 20120928
  Serious: No
  Sender: FDA-Public Use
  Company Number: US-JNJFOC-20120609682

PATIENT
  Sex: Female
  Weight: 52.16 kg

DRUGS (5)
  1. FENTANYL [Suspect]
     Route: 062
     Dates: start: 20110101
  2. FENTANYL [Suspect]
     Indication: PAIN
     Route: 062
  3. FENTANYL [Suspect]
     Route: 062
  4. FENTANYL-100 [Suspect]
     Indication: PAIN
     Route: 062
     Dates: start: 20120601
  5. FENTANYL [Suspect]
     Dosage: NDC# 0781-7243-55
     Route: 062
     Dates: start: 20120101

REACTIONS (4)
  - WRONG TECHNIQUE IN DRUG USAGE PROCESS [None]
  - PRODUCT QUALITY ISSUE [None]
  - ABASIA [None]
  - PAIN [None]
